FAERS Safety Report 9704883 (Version 1)
Quarter: 2013Q4

REPORT INFORMATION
  Report Type: Spontaneous
  Country: US (occurrence: US)
  Receive Date: 20131122
  Receipt Date: 20131122
  Transmission Date: 20140711
  Serious: Yes (Hospitalization, Other)
  Sender: FDA-Public Use
  Company Number: US-BAXTER-2013BAX045590

PATIENT
  Age: 68 Year
  Sex: Male

DRUGS (1)
  1. DIANEAL LOW CALCIUM [Suspect]
     Indication: RENAL FAILURE CHRONIC
     Route: 033

REACTIONS (4)
  - Diabetic complication [Recovering/Resolving]
  - Ketoacidosis [Recovered/Resolved]
  - Blood glucose increased [Recovering/Resolving]
  - Dehydration [Recovered/Resolved]
